FAERS Safety Report 15012154 (Version 3)
Quarter: 2018Q4

REPORT INFORMATION
  Report Type: Spontaneous
  Country: US (occurrence: US)
  Receive Date: 20180614
  Receipt Date: 20181218
  Transmission Date: 20190204
  Serious: Yes (Hospitalization, Disabling, Other)
  Sender: FDA-Public Use
  Company Number: US-OTSUKA-2018_015604

PATIENT
  Sex: Male

DRUGS (5)
  1. ABILIFY [Suspect]
     Active Substance: ARIPIPRAZOLE
     Dosage: 15 MG, QD
     Route: 065
     Dates: end: 201611
  2. ABILIFY [Suspect]
     Active Substance: ARIPIPRAZOLE
     Indication: BIPOLAR DISORDER
     Dosage: 7.5 MG, QD
     Route: 065
     Dates: start: 200810, end: 201611
  3. ARIPIPRAZOLE. [Concomitant]
     Active Substance: ARIPIPRAZOLE
     Indication: PRODUCT USED FOR UNKNOWN INDICATION
     Dosage: UNK
     Route: 065
     Dates: end: 201611
  4. ABILIFY [Suspect]
     Active Substance: ARIPIPRAZOLE
     Dosage: 15 MG, QD
     Route: 048
  5. PROZAC [Concomitant]
     Active Substance: FLUOXETINE HYDROCHLORIDE
     Indication: PRODUCT USED FOR UNKNOWN INDICATION
     Dosage: 60 MG, QD
     Route: 048
     Dates: start: 20150404, end: 20150702

REACTIONS (17)
  - Mental impairment [Unknown]
  - Eating disorder [Not Recovered/Not Resolved]
  - Impulse-control disorder [Unknown]
  - Emotional distress [Unknown]
  - Compulsive shopping [Not Recovered/Not Resolved]
  - Economic problem [Unknown]
  - Mental disorder [Unknown]
  - Social problem [Unknown]
  - Injury [Unknown]
  - Obsessive-compulsive disorder [Not Recovered/Not Resolved]
  - Disability [Unknown]
  - Suicidal ideation [Not Recovered/Not Resolved]
  - Gambling disorder [Recovered/Resolved]
  - Suicide attempt [Not Recovered/Not Resolved]
  - Anhedonia [Unknown]
  - Loss of employment [Unknown]
  - Pituitary tumour [Unknown]
